FAERS Safety Report 5971939-0 (Version None)
Quarter: 2008Q4

REPORT INFORMATION
  Report Type: 
  Country: None (occurrence: None)
  Receive Date: 20081201
  Receipt Date: 20081121
  Transmission Date: 20090506
  Serious: Yes (Disabling)
  Sender: FDA-Public Use
  Company Number: US-ABBOTT-06P-163-0326669-00

PATIENT
  Sex: Female
  Weight: 60 kg

DRUGS (25)
  1. ADALIMUMAB [Suspect]
     Indication: CROHN'S DISEASE
     Route: 058
     Dates: start: 20050818, end: 20060223
  2. AZATHIOPRINE [Concomitant]
     Indication: CROHN'S DISEASE
     Dates: start: 20030620
  3. LOMOTIL [Concomitant]
     Indication: DIARRHOEA
     Dosage: 2.5-5 MILLIGRAM
     Dates: start: 20030926
  4. CYANOCOBALAMIN [Concomitant]
     Indication: VITAMIN B12
     Dates: start: 20030101
  5. IMODIUM [Concomitant]
     Indication: DIARRHOEA
     Dates: start: 20030101
  6. PHENERGAN HCL [Concomitant]
     Indication: NAUSEA
     Dates: start: 20040201
  7. HYOSCYAMINE SULFATE [Concomitant]
     Indication: ABDOMINAL PAIN
     Dosage: 0.125-0.25 MILLIGRAM
     Dates: start: 20040416
  8. ISOCOM [Concomitant]
     Indication: MIGRAINE
     Dosage: 1-2 CAPSULE
     Dates: start: 20030101, end: 20060113
  9. DIPHENHYDRAMINE HYDROCHLORIDE [Concomitant]
     Indication: PRURITUS
     Dosage: 25-50 MILLIGRAM
     Dates: start: 19980101
  10. HYDROCODONE BITARTRATE [Concomitant]
     Indication: ABDOMINAL PAIN
     Dates: start: 20000101
  11. ACETAMINOPHEN [Concomitant]
     Indication: PAIN
     Dosage: 500-1000 MILLIGRAM
     Dates: start: 19910101
  12. MECLIZINE [Concomitant]
     Indication: DIZZINESS
     Dosage: 25-50 MILLIGRAM
     Dates: start: 20050731
  13. PENICILLIN [Concomitant]
     Indication: RESPIRATORY TRACT CONGESTION
     Dates: start: 20050825, end: 20050901
  14. LIDOCAINE [Concomitant]
     Indication: LOCAL ANAESTHESIA
     Dates: start: 20050901
  15. AZITHROMYCIN [Concomitant]
     Indication: RESPIRATORY TRACT CONGESTION
     Dates: start: 20050901, end: 20050901
  16. AZITHROMYCIN [Concomitant]
     Indication: PHARYNGITIS STREPTOCOCCAL
     Dates: start: 20050902, end: 20050905
  17. AZITHROMYCIN [Concomitant]
     Dates: start: 20051004, end: 20051004
  18. AZITHROMYCIN [Concomitant]
     Dates: start: 20051005, end: 20051008
  19. CYCLOBENZAPRINE HCL [Concomitant]
     Indication: MUSCLE SPASMS
     Dates: start: 20050902
  20. VICODIN [Concomitant]
     Indication: PAIN
     Dosage: 5/500 MILLIGRAM
     Dates: start: 20050902, end: 20060205
  21. VICODIN [Concomitant]
     Indication: PAIN IN EXTREMITY
     Dosage: 5/500 MILLIGRAM
     Dates: start: 20060227
  22. INFLUENZA VACCINE [Concomitant]
     Indication: IMMUNISATION
     Dates: start: 20051108, end: 20051108
  23. IMITREX [Concomitant]
     Indication: MIGRAINE
     Dates: start: 20060114
  24. ZITHROMAX [Concomitant]
     Indication: RESPIRATORY TRACT CONGESTION
     Dates: start: 20060119, end: 20060121
  25. ALBUTEROL SULFATE [Concomitant]
     Indication: RESPIRATORY TRACT CONGESTION
     Dates: start: 20060119

REACTIONS (5)
  - HYPOAESTHESIA [None]
  - MUSCULAR WEAKNESS [None]
  - PAIN IN EXTREMITY [None]
  - PERIPHERAL COLDNESS [None]
  - SKIN DISCOLOURATION [None]
